FAERS Safety Report 18209387 (Version 1)
Quarter: 2020Q3

REPORT INFORMATION
  Report Type: Spontaneous
  Country: CN (occurrence: CN)
  Receive Date: 20200828
  Receipt Date: 20200828
  Transmission Date: 20201103
  Serious: Yes (Life-Threatening, Hospitalization, Other)
  Sender: FDA-Public Use
  Company Number: CN-ASTRAZENECA-2020SF09261

PATIENT
  Age: 30 Year
  Sex: Female
  Weight: 58.9 kg

DRUGS (2)
  1. TRAZODONE HYDROCHLORIDE. [Suspect]
     Active Substance: TRAZODONE HYDROCHLORIDE
     Indication: DEPRESSION
     Route: 048
     Dates: start: 20200731, end: 20200803
  2. QUETIAPINE FUMARATE. [Suspect]
     Active Substance: QUETIAPINE FUMARATE
     Indication: DEPRESSION
     Route: 048
     Dates: start: 20200731, end: 20200803

REACTIONS (10)
  - Atrial fibrillation [Recovering/Resolving]
  - Electrocardiogram T wave abnormal [Unknown]
  - Exposure during pregnancy [Unknown]
  - Chest discomfort [Recovering/Resolving]
  - Palpitations [Recovering/Resolving]
  - Agitation [Recovering/Resolving]
  - Arrhythmia [Recovering/Resolving]
  - Placenta praevia haemorrhage [Unknown]
  - Abortion threatened [Unknown]
  - Electrocardiogram ST segment depression [Unknown]

NARRATIVE: CASE EVENT DATE: 20200803
